FAERS Safety Report 23582567 (Version 3)
Quarter: 2024Q2

REPORT INFORMATION
  Report Type: Report from Study
  Country: GR (occurrence: GR)
  Receive Date: 20240229
  Receipt Date: 20240522
  Transmission Date: 20240716
  Serious: Yes (Hospitalization)
  Sender: FDA-Public Use
  Company Number: GR-ABBVIE-5656492

PATIENT
  Age: 83 Year
  Sex: Female

DRUGS (10)
  1. CARBIDOPA\LEVODOPA [Suspect]
     Active Substance: CARBIDOPA\LEVODOPA
     Indication: Parkinson^s disease
     Dosage: MORNING DOSE: 12.2ML; CONTINUOUS RATE: 3.1ML/H; EXTRA DOSE: 1.0ML
     Route: 050
     Dates: start: 20201014
  2. CARBIDOPA\LEVODOPA [Suspect]
     Active Substance: CARBIDOPA\LEVODOPA
     Dosage: MORNING DOSE: 12.2ML; CONTINUOUS RATE: 3.0ML/H; EXTRA DOSE: 1.0ML
     Route: 050
  3. CARBIDOPA\LEVODOPA [Suspect]
     Active Substance: CARBIDOPA\LEVODOPA
     Dosage: MORNING DOSE: 5.0ML; CONTINUOUS RATE: 2.4ML/H; EXTRA DOSE: 1.0ML
     Route: 050
  4. ATROVENT [Concomitant]
     Active Substance: IPRATROPIUM BROMIDE
     Indication: Product used for unknown indication
     Dosage: UNIT DOSE: 500MCG/2ML
     Route: 055
  5. BROMAZEPAM [Concomitant]
     Active Substance: BROMAZEPAM
     Indication: Anxiety disorder
     Route: 048
  6. Donegal [Concomitant]
     Indication: Product used for unknown indication
     Route: 048
  7. LEVOTHYROXINE [Concomitant]
     Active Substance: LEVOTHYROXINE\LEVOTHYROXINE SODIUM
     Indication: Product used for unknown indication
     Route: 048
  8. CLOZAPINE [Concomitant]
     Active Substance: CLOZAPINE
     Indication: Hallucination
     Dosage: FORM STRENGTH WAS 25 MILLIGRAM
     Route: 048
  9. Flusonide [Concomitant]
     Indication: Product used for unknown indication
     Dosage: UNIT DOSE: 2MG/2ML
     Route: 055
  10. Galopran [Concomitant]
     Indication: Depression
     Route: 048

REACTIONS (4)
  - Hip fracture [Unknown]
  - Fall [Recovered/Resolved]
  - Aphasia [Unknown]
  - Bedridden [Not Recovered/Not Resolved]

NARRATIVE: CASE EVENT DATE: 20240201
